FAERS Safety Report 15464206 (Version 1)
Quarter: 2018Q4

REPORT INFORMATION
  Report Type: Spontaneous
  Country: DK (occurrence: DK)
  Receive Date: 20181004
  Receipt Date: 20181004
  Transmission Date: 20190204
  Serious: Yes (Hospitalization, Other)
  Sender: FDA-Public Use
  Company Number: DK-BRISTOL-MYERS SQUIBB COMPANY-BMS-2018-090283

PATIENT
  Age: 74 Year
  Sex: Male

DRUGS (17)
  1. NIZORAL [Interacting]
     Active Substance: KETOCONAZOLE
     Indication: FUNGAL INFECTION
     Dosage: 2 % UNK
     Route: 003
     Dates: start: 20150922
  2. BETOLVEX                           /00056201/ [Concomitant]
     Active Substance: CYANOCOBALAMIN
     Indication: VITAMIN B12 DEFICIENCY
     Dosage: 1 MG, UNK
     Route: 048
     Dates: start: 20160420
  3. METFORMIN ACTAVIS [Concomitant]
     Active Substance: METFORMIN HYDROCHLORIDE
     Indication: TYPE 2 DIABETES MELLITUS
     Dosage: 1700 MG, UNK
     Route: 048
     Dates: start: 20151028
  4. OXYNORM [Concomitant]
     Active Substance: OXYCODONE HYDROCHLORIDE
     Indication: PAIN
     Dosage: 5 MG, UNK
     Route: 048
     Dates: start: 20180731
  5. RAMIPRIL HYDROCHLORTHIAZIDE 1A PHARMA GMBH [Concomitant]
     Indication: HYPERTENSION
     Dosage: 1 DF, UNK
     Route: 048
  6. BLOXAZOC [Concomitant]
     Active Substance: METOPROLOL SUCCINATE
     Indication: HYPERTENSION
     Dosage: 50 MG, UNK
     Route: 048
  7. FURIX [Concomitant]
     Active Substance: FUROSEMIDE
     Indication: DIURETIC THERAPY
     Dosage: 120 MG, UNK
     Route: 048
     Dates: start: 20180723
  8. TOLTERODIN [Concomitant]
     Active Substance: TOLTERODINE TARTRATE
     Indication: DYSURIA
     Dosage: 4 MG, UNK
     Route: 048
     Dates: start: 20150318
  9. ELIQUIS [Suspect]
     Active Substance: APIXABAN
     Indication: CEREBROVASCULAR ACCIDENT PROPHYLAXIS
     Dosage: 10 MG, UNK
     Route: 048
     Dates: start: 20150902, end: 20180920
  10. KALEORID [Concomitant]
     Active Substance: POTASSIUM CHLORIDE
     Indication: MINERAL SUPPLEMENTATION
     Dosage: 1500 MG, UNK
     Route: 048
     Dates: start: 20180723
  11. PRAVASTATIN SANDOZ [Concomitant]
     Active Substance: PRAVASTATIN
     Indication: HYPERCHOLESTEROLAEMIA
     Dosage: 20 MG, UNK
     Route: 048
  12. GABAPENTIN. [Concomitant]
     Active Substance: GABAPENTIN
     Indication: NEURALGIA
     Dosage: 900 MG, UNK
     Route: 048
     Dates: start: 20180831
  13. KININ                              /00046701/ [Concomitant]
     Indication: MUSCLE SPASMS
     Dosage: 100 MG, UNK
     Route: 048
  14. VERALOC [Concomitant]
     Indication: ARRHYTHMIA
     Dosage: 360 MG, UNK
     Route: 048
     Dates: start: 20150831
  15. MOXONAT [Concomitant]
     Indication: HYPERTENSION
     Dosage: 0.4 UNK, UNK
     Route: 048
  16. TOUJEO [Concomitant]
     Active Substance: INSULIN GLARGINE
     Indication: DIABETES MELLITUS
     Route: 065
  17. DIPROSALIC [Concomitant]
     Active Substance: BETAMETHASONE DIPROPIONATE
     Indication: ECZEMA
     Dosage: 0.5/20 MG/G
     Route: 003
     Dates: start: 20150827

REACTIONS (4)
  - Haemorrhage [Not Recovered/Not Resolved]
  - Labelled drug-drug interaction medication error [Unknown]
  - Inappropriate schedule of product administration [Unknown]
  - Haemoglobin decreased [Unknown]

NARRATIVE: CASE EVENT DATE: 201806
